FAERS Safety Report 18095647 (Version 3)
Quarter: 2020Q3

REPORT INFORMATION
  Report Type: Spontaneous
  Country: FI (occurrence: FI)
  Receive Date: 20200731
  Receipt Date: 20200805
  Transmission Date: 20201103
  Serious: Yes (Hospitalization)
  Sender: FDA-Public Use
  Company Number: FI-ROCHE-2648938

PATIENT
  Age: 30 Year
  Sex: Female

DRUGS (12)
  1. OCREVUS [Suspect]
     Active Substance: OCRELIZUMAB
     Indication: RELAPSING-REMITTING MULTIPLE SCLEROSIS
     Dosage: 1 AND 15 DAYS, PAUSED
     Route: 042
     Dates: start: 20191223, end: 20200716
  2. BAKLOFEN MYLAN [Concomitant]
     Active Substance: BACLOFEN
     Dosage: THRICE
     Route: 048
  3. BETMIGA [Concomitant]
     Active Substance: MIRABEGRON
     Dosage: 50 MG *1
     Route: 048
  4. DEVISOL [Concomitant]
     Route: 048
  5. PEGORION [Concomitant]
     Active Substance: POLYETHYLENE GLYCOL 4000
     Route: 048
  6. PAMOL [Concomitant]
     Active Substance: ACETAMINOPHEN
     Indication: RELAPSING-REMITTING MULTIPLE SCLEROSIS
     Dosage: SEPARATE INSTRUCTION: PREMEDICATION BEFORE OCREVUS. PAMOL 1000MG
     Route: 048
     Dates: end: 20200716
  7. PANADOL FORTE [Concomitant]
     Dosage: IF NEEDED 1G (MAX. 3 G/DAY)
     Route: 048
  8. VENLAFAXINE XR [Concomitant]
     Active Substance: VENLAFAXINE HYDROCHLORIDE
     Dosage: 150 MG *1
     Route: 048
  9. OPAMOX [Concomitant]
     Active Substance: OXAZEPAM
     Dosage: IF NEEDED 7.5?15 MG (MAX 30 MG/DAY)
     Route: 048
  10. PRIMPERAN [Concomitant]
     Active Substance: METOCLOPRAMIDE HYDROCHLORIDE
     Dosage: 5 MG/ML, SOLUTION FOR INJECTION, IF NEEDED 10 MG (MAX 30 MG/DAY)
     Route: 042
  11. CETIRIZIN RATIOPHARM [Concomitant]
     Active Substance: CETIRIZINE HYDROCHLORIDE
     Indication: RELAPSING-REMITTING MULTIPLE SCLEROSIS
     Dosage: SEPARATE INSTRUCTION: PREMEDICATION BEFORE OCREVUS
     Route: 048
  12. SOLU?MEDROL [Concomitant]
     Active Substance: METHYLPREDNISOLONE SODIUM SUCCINATE
     Indication: RELAPSING-REMITTING MULTIPLE SCLEROSIS
     Dosage: INJ.KA, SEPARATE INSTRUCTION: PREMEDICATION BEFORE OCREVUS
     Route: 042
     Dates: end: 20200716

REACTIONS (7)
  - Hyperhidrosis [Recovered/Resolved]
  - Vomiting [Recovered/Resolved]
  - Musculoskeletal stiffness [Recovered/Resolved]
  - Gait disturbance [Recovered/Resolved]
  - Nausea [Recovered/Resolved]
  - Muscle spasticity [Recovered/Resolved]
  - Feeling cold [Recovered/Resolved]

NARRATIVE: CASE EVENT DATE: 20200714
